FAERS Safety Report 4918506-5 (Version None)
Quarter: 2006Q1

REPORT INFORMATION
  Report Type: 
  Country: None (occurrence: None)
  Receive Date: 20060221
  Receipt Date: 20060221
  Transmission Date: 20060701
  Serious: No
  Sender: FDA-Public Use
  Company Number: None

PATIENT
  Age: 52 Year
  Sex: Female

DRUGS (4)
  1. DURAGESIC-100 [Suspect]
     Indication: PAIN
     Dosage: 100MCG Q 48 HOURS
     Dates: start: 20060203
  2. ACTIQ [Concomitant]
  3. ELAVIL [Concomitant]
  4. LIDODERM [Concomitant]

REACTIONS (2)
  - DRUG INEFFECTIVE [None]
  - THERAPEUTIC RESPONSE UNEXPECTED WITH DRUG SUBSTITUTION [None]
